FAERS Safety Report 9460320 (Version 1)
Quarter: 2013Q3

REPORT INFORMATION
  Report Type: Spontaneous
  Country: IT (occurrence: None)
  Receive Date: 20130806
  Receipt Date: 20130806
  Transmission Date: 20140515
  Serious: Yes (Other)
  Sender: FDA-Public Use
  Company Number: 2013SA054523

PATIENT
  Age: 82 Year
  Sex: Female

DRUGS (5)
  1. CLEXANE [Suspect]
     Indication: DEEP VEIN THROMBOSIS
     Route: 058
     Dates: start: 20130409, end: 20130504
  2. COUMADIN (WARFARIN SODIUM) [Suspect]
     Indication: DEEP VEIN THROMBOSIS
     Route: 048
     Dates: start: 20130411
  3. TOTALIP [Concomitant]
  4. NORVASC [Concomitant]
  5. COMBISARTAN [Concomitant]

REACTIONS (6)
  - International normalised ratio increased [None]
  - Haematuria [None]
  - Blood pressure systolic increased [None]
  - Haematocrit decreased [None]
  - Haemoglobin decreased [None]
  - Red blood cell count decreased [None]
